FAERS Safety Report 24439648 (Version 3)
Quarter: 2024Q4

REPORT INFORMATION
  Report Type: Spontaneous
  Country: CN (occurrence: CN)
  Receive Date: 20241015
  Receipt Date: 20241025
  Transmission Date: 20250114
  Serious: Yes (Death, Other)
  Sender: MERCK
  Company Number: CN-009507513-2410CHN001759

PATIENT
  Age: 81 Year
  Sex: Male

DRUGS (2)
  1. LAGEVRIO [Suspect]
     Active Substance: MOLNUPIRAVIR
     Indication: COVID-19 treatment
     Dosage: 0.8G, Q12H; STOP DATE: ??-MAR-2024 00:00
     Route: 048
     Dates: start: 20240303
  2. PIPERACILLIN SODIUM\SULBACTAM SODIUM [Concomitant]
     Active Substance: PIPERACILLIN SODIUM\SULBACTAM SODIUM
     Indication: Infection prophylaxis
     Dosage: 5 GRAM, Q8H
     Route: 042

REACTIONS (6)
  - Pneumonia bacterial [Fatal]
  - Multiple organ dysfunction syndrome [Fatal]
  - Acute kidney injury [Unknown]
  - Cardiac failure [Unknown]
  - Upper gastrointestinal haemorrhage [Unknown]
  - Constipation [Unknown]

NARRATIVE: CASE EVENT DATE: 20240304
